FAERS Safety Report 7579488-3 (Version None)
Quarter: 2011Q2

REPORT INFORMATION
  Report Type: 
  Country: None (occurrence: None)
  Receive Date: 20110629
  Receipt Date: 20091203
  Transmission Date: 20111010
  Serious: Yes (Hospitalization, Other)
  Sender: FDA-Public Use
  Company Number: US-BAYER-200941694NA

PATIENT
  Age: 76 Year
  Sex: Female
  Weight: 63 kg

DRUGS (11)
  1. DOBUTAMINE HCL [Concomitant]
     Dosage: UNK
     Route: 042
     Dates: start: 20070919, end: 20070919
  2. FENTANYL [Concomitant]
     Dosage: UNK
     Route: 042
     Dates: start: 20070919, end: 20070919
  3. RED BLOOD CELLS [Concomitant]
     Dosage: UNK
     Dates: start: 20070919
  4. ACETYLSALICYLIC ACID SRT [Concomitant]
     Dosage: 81 MG, QD
     Route: 048
     Dates: start: 19990101
  5. TRASYLOL [Suspect]
     Indication: PRODUCT USED FOR UNKNOWN INDICATION
     Dosage: TEST DOSE -- DOSE NOT PROVIDED
     Route: 042
     Dates: start: 20070919, end: 20070919
  6. VYTORIN [Concomitant]
     Dosage: 10/40 DAILY
     Route: 048
  7. HEPARIN [Concomitant]
     Dosage: 20000 UNITS
     Route: 042
     Dates: start: 20070919, end: 20070919
  8. PLAVIX [Concomitant]
     Dosage: 75 MG
     Route: 048
     Dates: start: 20070912
  9. PROTAMINE SULFATE [Concomitant]
     Dosage: 200 MG
     Route: 042
     Dates: start: 20070919, end: 20070919
  10. PLATELETS [Concomitant]
     Dosage: UNK
     Dates: start: 20070919
  11. TRASYLOL [Suspect]
     Dosage: LOADING DOSE - BOLUS DOSE NOT SPECIFIED, INFUSION FOLLOWING @ 50ML/HR
     Route: 042
     Dates: start: 20070919, end: 20070919

REACTIONS (13)
  - RENAL INJURY [None]
  - ANXIETY [None]
  - RENAL FAILURE [None]
  - RENAL IMPAIRMENT [None]
  - FEAR [None]
  - STRESS [None]
  - PAIN [None]
  - CEREBROVASCULAR ACCIDENT [None]
  - MULTI-ORGAN DISORDER [None]
  - UNEVALUABLE EVENT [None]
  - ORGAN FAILURE [None]
  - CARDIAC DISORDER [None]
  - INJURY [None]
